FAERS Safety Report 18920789 (Version 1)
Quarter: 2021Q1

REPORT INFORMATION
  Report Type: Other
  Country: DE (occurrence: DE)
  Receive Date: 20210222
  Receipt Date: 20210222
  Transmission Date: 20210420
  Serious: Yes (Hospitalization)
  Sender: FDA-Public Use
  Company Number: DE-MACLEODS PHARMA UK LTD-MAC2021030197

PATIENT

DRUGS (5)
  1. SILDENAFIL. [Suspect]
     Active Substance: SILDENAFIL
     Indication: PULMONARY HYPERTENSION
     Dosage: UNK, LAST GIVEN 5 DOSES HIGHER, GIVEN 10 MG INSTEAD OF 5 MG
     Route: 048
     Dates: start: 20190126
  2. URSOFALK [Concomitant]
     Active Substance: URSODIOL
     Indication: CHOLESTASIS
     Dosage: UNK, BID, 60 MG MILLGRAM(S) EVERY DAYS 2 SEPARATED DOSES
     Route: 048
     Dates: start: 20190126
  3. FUROSEMIDE. [Concomitant]
     Active Substance: FUROSEMIDE
     Indication: EFFUSION
     Dosage: UNK, QID, DAILY DOSE: 27.6 MG MILLGRAM(S) EVERY DAYS 4 SEPARATED DOSES
     Route: 048
     Dates: start: 20190126
  4. SPIRONOLACTONE. [Concomitant]
     Active Substance: SPIRONOLACTONE
     Indication: EFFUSION
     Dosage: 12.5 MILLIGRAM, QD
     Route: 048
     Dates: start: 20190126
  5. FERRO SANOL [Concomitant]
     Active Substance: FERROUS GLYCINE SULFATE
     Indication: ANAEMIA
     Dosage: UNK, QID, 16 GTT DROP(S) EVERY DAYS 4 SEPARATED DOSES
     Route: 048
     Dates: start: 20190126

REACTIONS (5)
  - Toxicity to various agents [Unknown]
  - No adverse event [Recovered/Resolved]
  - Incorrect dose administered [Recovered/Resolved]
  - Overdose [Unknown]
  - Product administration error [Recovered/Resolved]

NARRATIVE: CASE EVENT DATE: 20190616
